FAERS Safety Report 9314745 (Version 1)
Quarter: 2013Q2

REPORT INFORMATION
  Report Type: Spontaneous
  Country: JP (occurrence: JP)
  Receive Date: 20130529
  Receipt Date: 20130529
  Transmission Date: 20140414
  Serious: Yes (Death, Life-Threatening)
  Sender: FDA-Public Use
  Company Number: JP-PFIZER INC-2013124124

PATIENT
  Age: 82 Year
  Sex: Male
  Weight: 50.7 kg

DRUGS (7)
  1. ZYVOX [Suspect]
     Indication: PNEUMONIA STAPHYLOCOCCAL
     Dosage: 1200 MG/DAY
     Route: 048
     Dates: start: 20130405, end: 20130418
  2. MODACIN [Concomitant]
     Dosage: 1 G, 1X/DAY
     Route: 042
     Dates: start: 20130319, end: 20130404
  3. VANCOMYCIN [Concomitant]
     Dosage: 0.25 G, 1X/DAY
     Route: 042
     Dates: start: 20130319, end: 20130405
  4. LANIRAPID [Concomitant]
     Dosage: 0.025 MG, 1X/DAY
     Route: 048
     Dates: start: 20130402
  5. MICARDIS [Concomitant]
     Dosage: 20 MG, 1X/DAY
     Route: 048
     Dates: start: 20130403, end: 20130403
  6. VALTREX [Concomitant]
     Dosage: 1 G, 1X/DAY
     Route: 048
     Dates: start: 20130417, end: 20130423
  7. MAINTATE [Concomitant]
     Dosage: 0.625 MG, 1X/DAY
     Route: 048
     Dates: start: 20130406

REACTIONS (3)
  - Cardio-respiratory arrest [Fatal]
  - Thrombocytopenia [Not Recovered/Not Resolved]
  - Hyponatraemia [Not Recovered/Not Resolved]
